FAERS Safety Report 8248306 (Version 3)
Quarter: 2013Q3

REPORT INFORMATION
  Report Type: Spontaneous
  Country: US (occurrence: US)
  Receive Date: 20111117
  Receipt Date: 20130814
  Transmission Date: 20140515
  Serious: Yes (Other)
  Sender: FDA-Public Use
  Company Number: US-US-EMD SERONO, INC.-7094880

PATIENT
  Age: 52 Year
  Sex: Female

DRUGS (3)
  1. REBIF [Suspect]
     Indication: PRODUCT USED FOR UNKNOWN INDICATION
     Route: 058
     Dates: start: 20100811, end: 201306
  2. ARICEPT [Concomitant]
     Indication: COGNITIVE DISORDER
  3. PREDNISONE [Concomitant]
     Indication: RHEUMATOID ARTHRITIS
     Dates: start: 1998

REACTIONS (10)
  - Dysphagia [Not Recovered/Not Resolved]
  - Oesophageal disorder [Not Recovered/Not Resolved]
  - Rales [Unknown]
  - Dyspnoea [Not Recovered/Not Resolved]
  - Sensation of heaviness [Unknown]
  - Micturition urgency [Unknown]
  - Glossodynia [Not Recovered/Not Resolved]
  - Weight decreased [Unknown]
  - Muscle tightness [Unknown]
  - Injection site erythema [Unknown]
